FAERS Safety Report 9993391 (Version 2)
Quarter: 2014Q1

REPORT INFORMATION
  Report Type: Spontaneous
  Country: BR (occurrence: BR)
  Receive Date: 20140310
  Receipt Date: 20140310
  Transmission Date: 20141002
  Serious: Yes (Death)
  Sender: FDA-Public Use
  Company Number: BR-TEVA-464562ISR

PATIENT
  Age: 81 Year
  Sex: Female
  Weight: 58.5 kg

DRUGS (20)
  1. TEVAGRASTIM [Suspect]
     Indication: NON-HODGKIN^S LYMPHOMA
     Dosage: 300 MICROGRAM DAILY;
     Dates: start: 20131219, end: 20131222
  2. PALONOSETRON [Concomitant]
     Indication: NON-HODGKIN^S LYMPHOMA
     Dosage: .25 MILLIGRAM DAILY;
     Route: 042
     Dates: start: 20131218
  3. DEXAMETHASONE [Concomitant]
     Indication: NON-HODGKIN^S LYMPHOMA
     Route: 042
     Dates: start: 20131218
  4. DEXAMETHASONE [Concomitant]
     Route: 042
     Dates: start: 20131226
  5. FOSAPREPITANT [Concomitant]
     Indication: NON-HODGKIN^S LYMPHOMA
     Route: 042
     Dates: start: 20131218
  6. BENDAMUSTINE [Concomitant]
     Indication: NON-HODGKIN^S LYMPHOMA
     Route: 042
     Dates: start: 20131218
  7. PARECOXIB [Concomitant]
     Indication: NON-HODGKIN^S LYMPHOMA
     Route: 042
     Dates: start: 20131226
  8. HYDROCORTISONE [Concomitant]
     Indication: NON-HODGKIN^S LYMPHOMA
     Route: 042
     Dates: start: 20131226
  9. RITUXIMAB [Concomitant]
     Indication: NON-HODGKIN^S LYMPHOMA
     Route: 042
     Dates: start: 20131226
  10. PANTOPRAZOLE [Concomitant]
     Route: 048
  11. DOMPERIDONE [Concomitant]
     Route: 048
  12. VITAMIN D [Concomitant]
     Route: 048
  13. ESCITALOPRAM [Concomitant]
     Route: 048
  14. FORMOTEROL [Concomitant]
     Route: 045
  15. SODIUM CHLORIDE [Concomitant]
     Route: 045
  16. ACETYLCYSTEINE [Concomitant]
     Route: 048
  17. RIVAROXABAN [Concomitant]
     Route: 048
  18. TIOTROPIUM [Concomitant]
     Route: 045
  19. CALCITONIN [Concomitant]
     Route: 048
  20. ATORVASTATIN [Concomitant]
     Route: 048

REACTIONS (2)
  - Death [Fatal]
  - Drug ineffective [Unknown]
